FAERS Safety Report 21515256 (Version 4)
Quarter: 2023Q2

REPORT INFORMATION
  Report Type: Spontaneous
  Country: US (occurrence: US)
  Receive Date: 20221027
  Receipt Date: 20230608
  Transmission Date: 20230722
  Serious: Yes (Hospitalization, Other)
  Sender: FDA-Public Use
  Company Number: US-PFIZER INC-PV202200090181

PATIENT
  Age: 78 Year
  Sex: Female
  Weight: 77.11 kg

DRUGS (3)
  1. VYNDAMAX [Suspect]
     Active Substance: TAFAMIDIS
     Indication: Cardiac disorder
     Dosage: 61 MG, DAILY
  2. VYNDAMAX [Suspect]
     Active Substance: TAFAMIDIS
     Indication: Aortic occlusion
  3. JANUVIA [Concomitant]
     Active Substance: SITAGLIPTIN PHOSPHATE
     Indication: Diabetes mellitus
     Dosage: UNK

REACTIONS (8)
  - Myocardial infarction [Unknown]
  - Thrombosis [Unknown]
  - Fall [Unknown]
  - Limb injury [Unknown]
  - Rotator cuff syndrome [Unknown]
  - Therapeutic response unexpected [Unknown]
  - Hypervigilance [Unknown]
  - Off label use [Unknown]
